FAERS Safety Report 17933153 (Version 1)
Quarter: 2020Q2

REPORT INFORMATION
  Report Type: Spontaneous
  Country: AR (occurrence: AR)
  Receive Date: 20200623
  Receipt Date: 20200623
  Transmission Date: 20200714
  Serious: Yes (Hospitalization)
  Sender: FDA-Public Use
  Company Number: AR-009507513-2006ARG007313

PATIENT
  Age: 47 Year
  Sex: Female

DRUGS (1)
  1. KEYTRUDA [Suspect]
     Active Substance: PEMBROLIZUMAB
     Indication: UNDIFFERENTIATED NASOPHARYNGEAL CARCINOMA
     Dates: start: 20200521

REACTIONS (5)
  - Diarrhoea [Recovering/Resolving]
  - Oral fungal infection [Unknown]
  - Stomatitis [Unknown]
  - Hepatomegaly [Unknown]
  - Hepatic enzyme increased [Recovering/Resolving]

NARRATIVE: CASE EVENT DATE: 20200528
